FAERS Safety Report 13467466 (Version 1)
Quarter: 2017Q2

REPORT INFORMATION
  Report Type: Spontaneous
  Country: None (occurrence: IT)
  Receive Date: 20170421
  Receipt Date: 20170421
  Transmission Date: 20170830
  Serious: Yes (Other)
  Sender: FDA-Public Use
  Company Number: IT-MEDAC PHARMA, INC.-1065634

PATIENT
  Sex: Male

DRUGS (3)
  1. METHOTREXATE (METHOTREXATE SODIUM) [Suspect]
     Active Substance: METHOTREXATE SODIUM
     Route: 030
  2. FOLIC ACID. [Concomitant]
     Active Substance: FOLIC ACID
  3. HUMIRA [Concomitant]
     Active Substance: ADALIMUMAB
     Route: 058

REACTIONS (1)
  - Lymphadenopathy [Recovering/Resolving]

NARRATIVE: CASE EVENT DATE: 20160801
